FAERS Safety Report 7678591-7 (Version None)
Quarter: 2011Q3

REPORT INFORMATION
  Report Type: 
  Country: None (occurrence: None)
  Receive Date: 20110811
  Receipt Date: 20110805
  Transmission Date: 20111222
  Serious: Yes (Death, Other)
  Sender: FDA-Public Use
  Company Number: PHHY2011FR71244

PATIENT
  Age: 70 Year
  Sex: Female

DRUGS (1)
  1. LEFLUNOMIDE [Suspect]
     Indication: PSORIATIC ARTHROPATHY
     Dosage: UNK UKN, UNK

REACTIONS (17)
  - ANAEMIA [None]
  - DRUG RASH WITH EOSINOPHILIA AND SYSTEMIC SYMPTOMS [None]
  - LIVER DISORDER [None]
  - COLITIS ULCERATIVE [None]
  - OESOPHAGITIS ULCERATIVE [None]
  - LYMPHADENOPATHY [None]
  - THROMBOCYTOPENIA [None]
  - HISTIOCYTOSIS HAEMATOPHAGIC [None]
  - RASH MACULO-PAPULAR [None]
  - DYSPHAGIA [None]
  - FACE OEDEMA [None]
  - RENAL IMPAIRMENT [None]
  - GASTROINTESTINAL HAEMORRHAGE [None]
  - PYREXIA [None]
  - DIARRHOEA [None]
  - PROTEINURIA [None]
  - HAEMATURIA [None]
